FAERS Safety Report 9380952 (Version 1)
Quarter: 2013Q3

REPORT INFORMATION
  Report Type: Report from Study
  Country: US (occurrence: US)
  Receive Date: 20130703
  Receipt Date: 20130703
  Transmission Date: 20140515
  Serious: No
  Sender: FDA-Public Use
  Company Number: US-ASTRAZENECA-2013SE42244

PATIENT
  Age: 50 Year
  Sex: Female
  Weight: 96.6 kg

DRUGS (4)
  1. SEROQUEL XR [Suspect]
     Indication: BIPOLAR DISORDER
     Route: 048
     Dates: start: 201105, end: 201108
  2. LITHIUM [Suspect]
     Route: 065
  3. REMERON [Concomitant]
     Indication: SLEEP DISORDER
     Dates: start: 201304
  4. REMERON [Concomitant]
     Indication: SLEEP DISORDER
     Dates: start: 201304

REACTIONS (6)
  - Dysarthria [Unknown]
  - Gait disturbance [Unknown]
  - Fall [Unknown]
  - Altered state of consciousness [Unknown]
  - Memory impairment [Unknown]
  - Insomnia [Unknown]
